FAERS Safety Report 20353191 (Version 3)
Quarter: 2022Q4

REPORT INFORMATION
  Report Type: Report from Study
  Country: US (occurrence: US)
  Receive Date: 20220119
  Receipt Date: 20221111
  Transmission Date: 20230113
  Serious: Yes (Other)
  Sender: FDA-Public Use
  Company Number: US-MYLANLABS-2021M1094472

PATIENT
  Sex: Female
  Weight: 90.72 kg

DRUGS (3)
  1. GLATIRAMER ACETATE [Suspect]
     Active Substance: GLATIRAMER ACETATE
     Indication: Relapsing-remitting multiple sclerosis
     Dosage: 40 MILLIGRAM, 3XW
     Route: 058
  2. ADDERALL [Concomitant]
     Active Substance: AMPHETAMINE ASPARTATE\AMPHETAMINE SULFATE\DEXTROAMPHETAMINE SACCHARATE\DEXTROAMPHETAMINE SULFATE
     Dosage: UNK
     Route: 065
  3. LYRICA [Concomitant]
     Active Substance: PREGABALIN
     Dosage: UNK
     Route: 065

REACTIONS (38)
  - Diverticulitis [Unknown]
  - Neuropathy peripheral [Unknown]
  - Loss of consciousness [Unknown]
  - Suicidal ideation [Unknown]
  - Swelling [Unknown]
  - White matter lesion [Unknown]
  - Abdominal neoplasm [Unknown]
  - Muscle spasms [Unknown]
  - Fall [Unknown]
  - Teeth brittle [Unknown]
  - Feeling abnormal [Recovered/Resolved]
  - Lethargy [Unknown]
  - Colitis [Unknown]
  - Malaise [Unknown]
  - Injection site mass [Unknown]
  - Chest pain [Unknown]
  - Chest discomfort [Unknown]
  - Wrong device used [Unknown]
  - Incorrect dose administered [Unknown]
  - Dizziness [Unknown]
  - Amnesia [Unknown]
  - Gait inability [Unknown]
  - Urinary incontinence [Unknown]
  - Anal incontinence [Unknown]
  - Fallopian tube neoplasm [Unknown]
  - Gastrointestinal pain [Unknown]
  - Pain [Unknown]
  - Visual impairment [Unknown]
  - Hypoaesthesia [Unknown]
  - Dyskinesia [Unknown]
  - Depression [Unknown]
  - Product substitution issue [Unknown]
  - Dysgraphia [Unknown]
  - Balance disorder [Unknown]
  - Speech disorder [Unknown]
  - Movement disorder [Unknown]
  - Post-traumatic stress disorder [Unknown]
  - General physical health deterioration [Unknown]
